FAERS Safety Report 7816460-X (Version None)
Quarter: 2011Q4

REPORT INFORMATION
  Report Type: 
  Country: None (occurrence: None)
  Receive Date: 20111017
  Receipt Date: 20111005
  Transmission Date: 20120403
  Serious: Yes (Hospitalization)
  Sender: FDA-Public Use
  Company Number: IT-JNJFOC-20111002851

PATIENT
  Sex: Male

DRUGS (3)
  1. ABIRATERONE ACETATE [Suspect]
     Route: 048
  2. WARFARIN SODIUM [Concomitant]
     Indication: CARDIAC DISORDER
     Route: 065
     Dates: start: 20070801, end: 20111001
  3. ABIRATERONE ACETATE [Suspect]
     Indication: PROSTATE CANCER METASTATIC
     Route: 048
     Dates: start: 20110915, end: 20111001

REACTIONS (4)
  - PLEURAL EFFUSION [None]
  - FATIGUE [None]
  - DYSPNOEA [None]
  - HYPOKALAEMIA [None]
